FAERS Safety Report 9160743 (Version 1)
Quarter: 2013Q1

REPORT INFORMATION
  Report Type: Spontaneous
  Country: US (occurrence: US)
  Receive Date: 20130313
  Receipt Date: 20130313
  Transmission Date: 20140127
  Serious: No
  Sender: FDA-Public Use
  Company Number: US-ASTRAZENECA-2013SE11068

PATIENT
  Age: 82 Year
  Sex: Female
  Weight: 58.5 kg

DRUGS (3)
  1. CRESTOR [Suspect]
     Indication: BLOOD CHOLESTEROL
     Route: 048
     Dates: start: 20121212, end: 20130119
  2. CRANBERRY [Concomitant]
     Indication: CYSTITIS
  3. FLAX SEED [Concomitant]
     Indication: BONE DISORDER

REACTIONS (5)
  - Bone pain [Unknown]
  - Myalgia [Unknown]
  - Asthenia [Unknown]
  - Swollen tongue [Unknown]
  - Myositis [Unknown]
